FAERS Safety Report 4295221-5 (Version None)
Quarter: 2004Q1

REPORT INFORMATION
  Report Type: 
  Country: None (occurrence: None)
  Receive Date: 20040216
  Receipt Date: 20030415
  Transmission Date: 20041129
  Serious: No
  Sender: FDA-Public Use
  Company Number: US-GLAXOSMITHKLINE-A0405039A

PATIENT
  Age: 34 Year
  Sex: Female
  Weight: 70 kg

DRUGS (4)
  1. LAMICTAL [Suspect]
     Dosage: 25MG PER DAY
     Route: 048
  2. EFFEXOR [Concomitant]
     Dosage: 225MG PER DAY
  3. GEODON [Concomitant]
     Dosage: 20MG PER DAY
  4. MERIDIA [Concomitant]

REACTIONS (1)
  - TOOTHACHE [None]
